FAERS Safety Report 5588360-X (Version None)
Quarter: 2008Q1

REPORT INFORMATION
  Report Type: 
  Country: None (occurrence: None)
  Receive Date: 20080111
  Receipt Date: 20080107
  Transmission Date: 20080703
  Serious: No
  Sender: FDA-Public Use
  Company Number: A0686693A

PATIENT
  Age: 61 Year
  Sex: Female

DRUGS (4)
  1. TYKERB [Suspect]
     Indication: BREAST CANCER
     Dosage: 1G PER DAY
     Route: 048
     Dates: start: 20070801
  2. XELODA [Concomitant]
  3. POTASSIUM [Concomitant]
  4. BONE BUILDER WITH BORON [Concomitant]

REACTIONS (4)
  - DIARRHOEA [None]
  - PHARMACEUTICAL PRODUCT COMPLAINT [None]
  - RETCHING [None]
  - VOMITING [None]
